FAERS Safety Report 24088602 (Version 2)
Quarter: 2024Q3

REPORT INFORMATION
  Report Type: Report from Study
  Country: US (occurrence: US)
  Receive Date: 20240715
  Receipt Date: 20240720
  Transmission Date: 20241016
  Serious: Yes (Hospitalization, Other)
  Sender: ABBVIE
  Company Number: US-ABBVIE-5837826

PATIENT
  Age: 27 Year
  Sex: Male
  Weight: 52.163 kg

DRUGS (5)
  1. HUMIRA [Suspect]
     Active Substance: ADALIMUMAB
     Indication: Crohn^s disease
     Route: 058
     Dates: start: 202301, end: 20230507
  2. HUMIRA [Suspect]
     Active Substance: ADALIMUMAB
     Route: 058
     Dates: start: 2018, end: 20240405
  3. HUMIRA [Suspect]
     Active Substance: ADALIMUMAB
     Route: 058
     Dates: start: 20230611, end: 20230702
  4. MERCAPTOPURINE [Concomitant]
     Active Substance: MERCAPTOPURINE
     Indication: Product used for unknown indication
     Dates: start: 2018, end: 2018
  5. METHOTREXATE [Concomitant]
     Active Substance: METHOTREXATE
     Indication: Product used for unknown indication
     Dates: start: 202306, end: 202307

REACTIONS (7)
  - Ileal stenosis [Recovered/Resolved]
  - Wound infection [Recovered/Resolved]
  - Crohn^s disease [Recovered/Resolved]
  - Drug specific antibody present [Unknown]
  - Impaired healing [Unknown]
  - Gastrointestinal anastomotic leak [Recovered/Resolved]
  - Gastrointestinal anastomotic complication [Recovered/Resolved]

NARRATIVE: CASE EVENT DATE: 20230520
